FAERS Safety Report 10004915 (Version 3)
Quarter: 2015Q3

REPORT INFORMATION
  Report Type: Spontaneous
  Country: US (occurrence: US)
  Receive Date: 20140312
  Receipt Date: 20150812
  Transmission Date: 20151125
  Serious: No
  Sender: FDA-Public Use
  Company Number: US-GILEAD-2012-0062929

PATIENT
  Age: 68 Year
  Sex: Female

DRUGS (2)
  1. REVATIO [Concomitant]
     Active Substance: SILDENAFIL CITRATE
  2. LETAIRIS [Suspect]
     Active Substance: AMBRISENTAN
     Indication: COR PULMONALE CHRONIC
     Dosage: 5 MG, UNK
     Route: 048
     Dates: start: 20080811

REACTIONS (9)
  - Weight decreased [Unknown]
  - Scleroderma [Unknown]
  - Fatigue [Unknown]
  - Gastrointestinal disorder [Unknown]
  - Weight gain poor [Unknown]
  - Dizziness [Unknown]
  - Blood iron decreased [Unknown]
  - Gait disturbance [Unknown]
  - Pain [Unknown]
